FAERS Safety Report 9405559 (Version 1)
Quarter: 2013Q3

REPORT INFORMATION
  Report Type: Spontaneous
  Country: GB (occurrence: GB)
  Receive Date: 20130717
  Receipt Date: 20130717
  Transmission Date: 20140515
  Serious: Yes (Death, Hospitalization, Other)
  Sender: FDA-Public Use
  Company Number: GB-ROXANE LABORATORIES, INC.-2013-RO-01155RO

PATIENT
  Age: 22 Year
  Sex: Male

DRUGS (6)
  1. AZATHIOPRINE [Suspect]
     Indication: COLITIS
     Dosage: 125 MG
  2. ASACOL [Suspect]
     Indication: COLITIS
     Dosage: 3.8 G
  3. PREDNISOLONE [Suspect]
     Indication: COLITIS
  4. FLUDARABINE [Suspect]
     Indication: CHRONIC MYELOMONOCYTIC LEUKAEMIA
  5. CYTARABINE [Suspect]
     Indication: CHRONIC MYELOMONOCYTIC LEUKAEMIA
  6. IDARUBICIN [Suspect]
     Indication: CHRONIC MYELOMONOCYTIC LEUKAEMIA

REACTIONS (5)
  - Chronic myelomonocytic leukaemia [Fatal]
  - Myelodysplastic syndrome [Unknown]
  - Colitis [Unknown]
  - Neutropenic sepsis [Unknown]
  - Cytomegalovirus colitis [Unknown]
